FAERS Safety Report 5411231-6 (Version None)
Quarter: 2007Q3

REPORT INFORMATION
  Report Type: 
  Country: None (occurrence: None)
  Receive Date: 20070810
  Receipt Date: 20070801
  Transmission Date: 20080115
  Serious: Yes (Other)
  Sender: FDA-Public Use
  Company Number: B0482533A

PATIENT
  Sex: Female

DRUGS (1)
  1. DARAPRIM [Suspect]
     Indication: TOXOPLASMOSIS
     Dosage: 25MG TWICE PER DAY
     Route: 065

REACTIONS (6)
  - BLEEDING TIME ABNORMAL [None]
  - NAUSEA [None]
  - PETECHIAE [None]
  - PLATELET COUNT DECREASED [None]
  - PLATELET FUNCTION TEST ABNORMAL [None]
  - THROMBOCYTOPENIA [None]
